FAERS Safety Report 24142558 (Version 3)
Quarter: 2024Q3

REPORT INFORMATION
  Report Type: Spontaneous
  Country: US (occurrence: US)
  Receive Date: 20240726
  Receipt Date: 20240814
  Transmission Date: 20241017
  Serious: Yes (Hospitalization, Other)
  Sender: GLENMARK
  Company Number: US-GLENMARK PHARMACEUTICALS-2024GMK092470

PATIENT

DRUGS (1)
  1. INDOMETHACIN [Interacting]
     Active Substance: INDOMETHACIN
     Indication: Arthralgia
     Dosage: UNK, PRN
     Route: 065

REACTIONS (3)
  - Blood glucose decreased [Unknown]
  - Drug interaction [Unknown]
  - Product use in unapproved indication [Unknown]
